FAERS Safety Report 5790083-9 (Version None)
Quarter: 2008Q2

REPORT INFORMATION
  Report Type: 
  Country: None (occurrence: None)
  Receive Date: 20080626
  Receipt Date: 20080227
  Transmission Date: 20081010
  Serious: No
  Sender: FDA-Public Use
  Company Number: A0672235A

PATIENT
  Age: 43 Year

DRUGS (2)
  1. ALLI [Suspect]
     Dates: start: 20080101
  2. FIBER [Concomitant]
     Route: 048

REACTIONS (8)
  - ABDOMINAL DISTENSION [None]
  - ASTHENIA [None]
  - FLATULENCE [None]
  - FOOD CRAVING [None]
  - MUSCLE SPASMS [None]
  - NASOPHARYNGITIS [None]
  - SINUSITIS [None]
  - WEIGHT INCREASED [None]
